FAERS Safety Report 23348930 (Version 1)
Quarter: 2023Q4

REPORT INFORMATION
  Report Type: Spontaneous
  Country: US (occurrence: US)
  Receive Date: 20231229
  Receipt Date: 20231229
  Transmission Date: 20240110
  Serious: Yes (Hospitalization, Other)
  Sender: FDA-Public Use
  Company Number: US-CPL-003889

PATIENT
  Age: 53 Year
  Sex: Female

DRUGS (5)
  1. BUPROPION [Suspect]
     Active Substance: BUPROPION
     Dosage: INTENTIONALLY INGESTED APPROX. 13.5 GM
  2. FLUOXETINE [Suspect]
     Active Substance: FLUOXETINE HYDROCHLORIDE
     Dosage: INTENTIONALLY INGESTED APPROX. 1.2 G
  3. QUETIAPINE [Suspect]
     Active Substance: QUETIAPINE
     Dosage: INTENTIONALLY INGESTED APPROX. 6 G
  4. CLONIDINE [Suspect]
     Active Substance: CLONIDINE
     Dosage: INTENTIONALLY INGESTED APPROX. 6 MG
  5. GABAPENTIN [Suspect]
     Active Substance: GABAPENTIN
     Dosage: INTENTIONALLY INGESTED APPROX. 9 G

REACTIONS (6)
  - Toxicity to various agents [Recovered/Resolved]
  - Acute respiratory distress syndrome [Recovered/Resolved]
  - Seizure [Recovered/Resolved]
  - Electrocardiogram QT prolonged [Recovered/Resolved]
  - Serotonin syndrome [Recovered/Resolved]
  - Cardiovascular disorder [Recovered/Resolved]
